FAERS Safety Report 5989399-2 (Version None)
Quarter: 2008Q4

REPORT INFORMATION
  Report Type: 
  Country: None (occurrence: None)
  Receive Date: 20081210
  Receipt Date: 20081128
  Transmission Date: 20090506
  Serious: Yes (Other)
  Sender: FDA-Public Use
  Company Number: JP-ROCHE-600015

PATIENT
  Age: 43 Year
  Sex: Male

DRUGS (5)
  1. CLONAZEPAM [Suspect]
     Indication: DRUG USE FOR UNKNOWN INDICATION
     Route: 065
  2. VITAMIN B COMPLEX CAP [Suspect]
     Indication: DRUG USE FOR UNKNOWN INDICATION
     Route: 065
  3. IRON [Suspect]
     Indication: DRUG USE FOR UNKNOWN INDICATION
     Route: 065
  4. 1 SUSPECTED DRUG [Suspect]
     Indication: DRUG USE FOR UNKNOWN INDICATION
     Dosage: DRUG NAME REPORTED: SLEEP MEDICATIONS.
     Route: 065
  5. 1 SUSPECTED DRUG [Suspect]
     Indication: CONVULSION
     Dosage: DRUG NAME REPORTED: ANTI-CONVULSANTS.
     Route: 065

REACTIONS (2)
  - HYPERSOMNIA [None]
  - RESTLESS LEGS SYNDROME [None]
